FAERS Safety Report 20721403 (Version 1)
Quarter: 2022Q2

REPORT INFORMATION
  Report Type: Spontaneous
  Country: IR (occurrence: IR)
  Receive Date: 20220418
  Receipt Date: 20220418
  Transmission Date: 20220721
  Serious: Yes (Other)
  Sender: FDA-Public Use
  Company Number: IR-LUPIN PHARMACEUTICALS INC.-2022-05676

PATIENT
  Age: 7 Year
  Sex: Male
  Weight: 37 kg

DRUGS (18)
  1. CARVEDILOL [Suspect]
     Active Substance: CARVEDILOL
     Indication: Multisystem inflammatory syndrome in children
     Dosage: 25 MG, QD
     Route: 065
  2. CARVEDILOL [Suspect]
     Active Substance: CARVEDILOL
     Indication: Cardiac failure
  3. NOREPINEPHRINE [Suspect]
     Active Substance: NOREPINEPHRINE
     Indication: Multisystem inflammatory syndrome in children
     Dosage: 0.1 MACRO/KG/MIN
     Route: 065
  4. NOREPINEPHRINE [Suspect]
     Active Substance: NOREPINEPHRINE
     Indication: Cardiac failure
  5. EPINEPHRINE [Suspect]
     Active Substance: EPINEPHRINE
     Indication: Multisystem inflammatory syndrome in children
     Dosage: 0.1 MACRO/KG/MIN
     Route: 065
  6. EPINEPHRINE [Suspect]
     Active Substance: EPINEPHRINE
     Indication: Cardiac failure
  7. MILRINONE [Suspect]
     Active Substance: MILRINONE
     Indication: Multisystem inflammatory syndrome in children
     Dosage: 50 MCG/KG (LOADING DOSE BY IV PUSH OVER 10-60 MINUTES, LATER, THE DOSE WAS 0.25 - 0.75 MCG/KG/MIN)
     Route: 042
  8. MILRINONE [Suspect]
     Active Substance: MILRINONE
     Indication: Cardiac failure
  9. CAPTOPRIL [Suspect]
     Active Substance: CAPTOPRIL
     Indication: Multisystem inflammatory syndrome in children
     Dosage: UNK, QD (0.3-0.5 MG/KG/DOSE)
     Route: 065
  10. CAPTOPRIL [Suspect]
     Active Substance: CAPTOPRIL
     Indication: Cardiac failure
  11. DOBUTAMINE [Suspect]
     Active Substance: DOBUTAMINE HYDROCHLORIDE
     Indication: Multisystem inflammatory syndrome in children
     Dosage: UNK
     Route: 065
  12. DOBUTAMINE [Suspect]
     Active Substance: DOBUTAMINE HYDROCHLORIDE
     Indication: Cardiac failure
  13. LEVOSIMENDAN [Concomitant]
     Active Substance: LEVOSIMENDAN
     Indication: Multisystem inflammatory syndrome in children
     Dosage: 0.1 MICROGRAM/KILOGRAM
     Route: 065
  14. LEVOSIMENDAN [Concomitant]
     Active Substance: LEVOSIMENDAN
     Indication: Cardiac failure
  15. LASIX [Concomitant]
     Active Substance: FUROSEMIDE
     Indication: Product used for unknown indication
     Dosage: 0.05 MILLIGRAM/KILOGRAM, EVERY 1 HOUR
     Route: 065
  16. ENOXAPARIN [Concomitant]
     Active Substance: ENOXAPARIN
     Indication: Product used for unknown indication
     Dosage: 18 MG, BID
     Route: 058
  17. METHYLPREDNISOLONE [Concomitant]
     Active Substance: METHYLPREDNISOLONE
     Indication: Rash
     Dosage: UNK (PULSE THERAPY)
     Route: 065
  18. HUMAN IMMUNOGLOBULIN G [Concomitant]
     Active Substance: HUMAN IMMUNOGLOBULIN G
     Indication: Rash
     Dosage: UNK
     Route: 042

REACTIONS (1)
  - Drug ineffective [Unknown]
